FAERS Safety Report 6017769-5 (Version None)
Quarter: 2008Q4

REPORT INFORMATION
  Report Type: 
  Country: None (occurrence: None)
  Receive Date: 20081223
  Receipt Date: 20081212
  Transmission Date: 20090506
  Serious: Yes (Hospitalization)
  Sender: FDA-Public Use
  Company Number: US-BIOGENIDEC-2008BI033533

PATIENT
  Age: 32 Year
  Sex: Female

DRUGS (1)
  1. TYSABRI [Suspect]
     Indication: MULTIPLE SCLEROSIS
     Route: 042
     Dates: start: 20080318, end: 20080601

REACTIONS (6)
  - ABASIA [None]
  - GAIT DISTURBANCE [None]
  - HYPOAESTHESIA [None]
  - MUSCLE SPASMS [None]
  - TREMOR [None]
  - URINARY INCONTINENCE [None]
